FAERS Safety Report 10382788 (Version 1)
Quarter: 2014Q3

REPORT INFORMATION
  Report Type: Spontaneous
  Country: US (occurrence: US)
  Receive Date: 20140813
  Receipt Date: 20140813
  Transmission Date: 20150326
  Serious: No
  Sender: FDA-Public Use
  Company Number: US-SA-2013SA104407

PATIENT
  Age: 46 Year
  Sex: Female
  Weight: 70.3 kg

DRUGS (2)
  1. FABRAZYME [Suspect]
     Active Substance: AGALSIDASE BETA
     Indication: FABRY^S DISEASE
     Route: 042
     Dates: start: 20120813
  2. FABRAZYME [Suspect]
     Active Substance: AGALSIDASE BETA
     Indication: FABRY^S DISEASE
     Route: 042
     Dates: start: 20120813

REACTIONS (4)
  - Stress [Unknown]
  - Paraesthesia oral [Recovered/Resolved]
  - Herpes zoster [Unknown]
  - Paraesthesia [Recovered/Resolved]

NARRATIVE: CASE EVENT DATE: 20131012
